FAERS Safety Report 19067216 (Version 1)
Quarter: 2021Q1

REPORT INFORMATION
  Report Type: Spontaneous
  Country: CA (occurrence: CA)
  Receive Date: 20210329
  Receipt Date: 20210329
  Transmission Date: 20210420
  Serious: Yes (Death)
  Sender: FDA-Public Use
  Company Number: CA-JNJFOC-20210349009

PATIENT
  Age: 75 Year
  Sex: Female
  Weight: 47 kg

DRUGS (3)
  1. MEZAVANT [Concomitant]
     Active Substance: MESALAMINE
  2. INFLIXIMAB, RECOMBINANT [Suspect]
     Active Substance: INFLIXIMAB
     Indication: COLITIS ULCERATIVE
     Route: 042
  3. PREDNISONE. [Concomitant]
     Active Substance: PREDNISONE
     Route: 065

REACTIONS (3)
  - Death [Fatal]
  - Inappropriate schedule of product administration [Fatal]
  - Blood pressure diastolic decreased [Fatal]
